FAERS Safety Report 10183564 (Version 2)
Quarter: 2014Q2

REPORT INFORMATION
  Report Type: Report from Study
  Country: CA (occurrence: CA)
  Receive Date: 20140520
  Receipt Date: 20140620
  Transmission Date: 20141212
  Serious: Yes (Death, Hospitalization)
  Sender: FDA-Public Use
  Company Number: CA-ACTELION-A-NJ2014-98779

PATIENT
  Age: 81 Year
  Sex: Male

DRUGS (1)
  1. TRACLEER [Suspect]
     Indication: PRODUCT USED FOR UNKNOWN INDICATION
     Dosage: UNK
     Route: 048
     Dates: start: 20090421, end: 20130413

REACTIONS (4)
  - Sleep apnoea syndrome [Fatal]
  - Hypercapnia [Fatal]
  - Respiratory failure [Unknown]
  - Stupor [Unknown]
